FAERS Safety Report 25669629 (Version 1)
Quarter: 2025Q3

REPORT INFORMATION
  Report Type: Spontaneous
  Country: EU (occurrence: EU)
  Receive Date: 20250812
  Receipt Date: 20250812
  Transmission Date: 20251020
  Serious: Yes (Life-Threatening, Hospitalization)
  Sender: MYLAN
  Company Number: EU-MYLANLABS-2025M1066216

PATIENT
  Age: 67 Year
  Sex: Female

DRUGS (11)
  1. VERAPAMIL [Suspect]
     Active Substance: VERAPAMIL HYDROCHLORIDE
     Indication: Product used for unknown indication
     Dosage: THREE TIMES A DAY VIA GASTRIC TUBE
  2. ROCURONIUM [Suspect]
     Active Substance: ROCURONIUM BROMIDE
     Indication: Anaesthesia
  3. METOPROLOL [Suspect]
     Active Substance: METOPROLOL
     Indication: Hypertension
  4. CAFEDRINE\THEODRENALINE [Suspect]
     Active Substance: CAFEDRINE\THEODRENALINE
     Indication: Hypotension
  5. NOREPINEPHRINE [Suspect]
     Active Substance: NOREPINEPHRINE
     Indication: Hypotension
     Dosage: 0.22 MICROGRAM/KILOGRAM, QMINUTE
  6. PROPOFOL [Suspect]
     Active Substance: PROPOFOL
     Indication: Anaesthesia
  7. SUFENTANIL [Suspect]
     Active Substance: SUFENTANIL
     Indication: Anaesthesia
  8. ALENDRONIC ACID [Concomitant]
     Active Substance: ALENDRONIC ACID
     Indication: Product used for unknown indication
  9. COBALAMIN [Concomitant]
     Active Substance: COBALAMIN
     Indication: Product used for unknown indication
  10. CHOLECALCIFEROL [Concomitant]
     Active Substance: CHOLECALCIFEROL
     Indication: Product used for unknown indication
  11. FOLATE SODIUM [Concomitant]
     Active Substance: FOLATE SODIUM
     Indication: Product used for unknown indication

REACTIONS (6)
  - Arteriospasm coronary [Recovering/Resolving]
  - Sinoatrial block [Recovering/Resolving]
  - Atrioventricular block [Recovering/Resolving]
  - Cardiogenic shock [Recovering/Resolving]
  - Acute myocardial infarction [Recovered/Resolved]
  - Off label use [Unknown]
